FAERS Safety Report 4393050-5 (Version None)
Quarter: 2004Q3

REPORT INFORMATION
  Report Type: 
  Country: None (occurrence: None)
  Receive Date: 20040708
  Receipt Date: 20031029
  Transmission Date: 20050211
  Serious: Yes (Other)
  Sender: FDA-Public Use
  Company Number: PHBS2003NO12187

PATIENT
  Age: 65 Year
  Sex: Female

DRUGS (3)
  1. LAMISIL [Suspect]
     Route: 048
     Dates: start: 20031001, end: 20031001
  2. LAMISIL [Suspect]
     Route: 061
  3. INFLUENZA VIRUS VACCINE [Concomitant]

REACTIONS (5)
  - DERMATITIS BULLOUS [None]
  - ERYTHEMA MULTIFORME [None]
  - PSORIASIS [None]
  - RASH PUSTULAR [None]
  - WHITE BLOOD CELL COUNT INCREASED [None]
